FAERS Safety Report 10290532 (Version 1)
Quarter: 2014Q3

REPORT INFORMATION
  Report Type: Spontaneous
  Country: FR (occurrence: None)
  Receive Date: 20140708
  Receipt Date: 20140708
  Transmission Date: 20150326
  Serious: Yes (Hospitalization)
  Sender: FDA-Public Use
  Company Number: 7303538

PATIENT
  Age: 90 Year
  Sex: Female

DRUGS (8)
  1. LYSANXIA (PRAZEPAM) [Concomitant]
  2. VESICARE /01735901/ (SOLIFENACIN) [Concomitant]
  3. TRIATEC /00885601/ (RAMIPRIL) [Concomitant]
  4. LEVOTHYROX (LEVOTHYROXINE SODIUM) (LEVOTHYROXINE SODIUM) [Suspect]
     Active Substance: LEVOTHYROXINE SODIUM
     Indication: PRODUCT USED FOR UNKNOWN INDICATION
     Route: 048
     Dates: end: 20131211
  5. CLOPIDOGREL [Concomitant]
     Active Substance: CLOPIDOGREL BISULFATE
  6. DOLIPRANE (PARACETAMOL) (PARACETAMOL) [Concomitant]
  7. BETAHISTINE (BETAHISTINE) [Concomitant]
     Active Substance: BETAHISTINE
  8. ESOMEPRAZOLE (ESOMEPRAZOLE) [Concomitant]
     Active Substance: ESOMEPRAZOLE

REACTIONS (3)
  - Bundle branch block right [None]
  - Ventricular extrasystoles [None]
  - Atrial fibrillation [None]

NARRATIVE: CASE EVENT DATE: 20131210
